FAERS Safety Report 17804491 (Version 3)
Quarter: 2020Q2

REPORT INFORMATION
  Report Type: Report from Study
  Country: DE (occurrence: DE)
  Receive Date: 20200519
  Receipt Date: 20200527
  Transmission Date: 20200714
  Serious: Yes (Hospitalization, Other)
  Sender: FDA-Public Use
  Company Number: DE-BRISTOL-MYERS SQUIBB COMPANY-BMS-2020-028846

PATIENT
  Age: 67 Year
  Sex: Male

DRUGS (6)
  1. NIVOLUMAB [Suspect]
     Active Substance: NIVOLUMAB
     Indication: MALIGNANT MELANOMA
     Dosage: 86 MILLIGRAM, Q4WK
     Route: 042
     Dates: start: 20191111
  2. NIVOLUMAB [Suspect]
     Active Substance: NIVOLUMAB
     Indication: PRODUCT USED FOR UNKNOWN INDICATION
     Dosage: 480 MILLIGRAM
     Route: 042
     Dates: start: 20200107
  3. METHYLPREDNISOLON [METHYLPREDNISOLONE] [Concomitant]
     Active Substance: METHYLPREDNISOLONE
     Indication: PRODUCT USED FOR UNKNOWN INDICATION
     Dosage: 200 MILLIGRAM
     Route: 042
     Dates: start: 20200423
  4. NIVOLUMAB [Suspect]
     Active Substance: NIVOLUMAB
     Indication: PRODUCT USED FOR UNKNOWN INDICATION
     Dosage: 480 MILLIGRAM
     Route: 042
     Dates: start: 20200204
  5. IMMUNGLOBULIN [Concomitant]
     Active Substance: HUMAN IMMUNOGLOBULIN G
     Indication: PRODUCT USED FOR UNKNOWN INDICATION
     Route: 065
  6. NIVOLUMAB [Suspect]
     Active Substance: NIVOLUMAB
     Indication: PRODUCT USED FOR UNKNOWN INDICATION
     Dosage: 480 MILLIGRAM
     Route: 042
     Dates: start: 20191210

REACTIONS (9)
  - Autoimmune hepatitis [Recovering/Resolving]
  - Autoimmune neuropathy [Unknown]
  - Hepatic enzyme increased [Not Recovered/Not Resolved]
  - Hypoaesthesia [Unknown]
  - Mucosal infection [Recovered/Resolved]
  - Diarrhoea [Recovered/Resolved]
  - Subdural haematoma [Recovering/Resolving]
  - Epilepsy [Unknown]
  - Pulmonary oedema [Unknown]

NARRATIVE: CASE EVENT DATE: 20200225
